FAERS Safety Report 14537587 (Version 2)
Quarter: 2018Q1

REPORT INFORMATION
  Report Type: Spontaneous
  Country: US (occurrence: US)
  Receive Date: 20180215
  Receipt Date: 20180225
  Transmission Date: 20180509
  Serious: No
  Sender: FDA-Public Use
  Company Number: US-JNJFOC-20180201257

PATIENT
  Age: 56 Year
  Sex: Female

DRUGS (2)
  1. TRADJENTA [Concomitant]
     Active Substance: LINAGLIPTIN
     Route: 065
  2. XARELTO [Suspect]
     Active Substance: RIVAROXABAN
     Indication: SEGMENTED HYALINISING VASCULITIS
     Route: 048
     Dates: start: 20180124

REACTIONS (2)
  - Off label use [Unknown]
  - Product use in unapproved indication [Unknown]

NARRATIVE: CASE EVENT DATE: 20180124
